FAERS Safety Report 4355861-1 (Version None)
Quarter: 2004Q2

REPORT INFORMATION
  Report Type: 
  Country: None (occurrence: None)
  Receive Date: 20040505
  Receipt Date: 20040422
  Transmission Date: 20050107
  Serious: Yes (Hospitalization, Other)
  Sender: FDA-Public Use
  Company Number: NLWYE724526APR04

PATIENT
  Sex: Male

DRUGS (1)
  1. RAPAMUNE [Suspect]
     Dosage: 8 MG 1X PER 1 DAY; 4 MG 1X PER 1 DAY

REACTIONS (2)
  - DEHYDRATION [None]
  - DIARRHOEA [None]
